FAERS Safety Report 8851217 (Version 1)
Quarter: 2012Q4

REPORT INFORMATION
  Report Type: 
  Country: PR (occurrence: US)
  Receive Date: 20121019
  Receipt Date: 20121019
  Transmission Date: 20130627
  Serious: No
  Sender: FDA-Public Use
  Company Number: US-BRISTOL-MYERS SQUIBB COMPANY-16884199

PATIENT
  Age: 65 Year
  Sex: Female

DRUGS (1)
  1. YERVOY [Suspect]
     Dosage: Doses: 4

REACTIONS (1)
  - Diarrhoea infectious [Unknown]
